FAERS Safety Report 6694821-2 (Version None)
Quarter: 2010Q2

REPORT INFORMATION
  Report Type: 
  Country: None (occurrence: None)
  Receive Date: 20100420
  Receipt Date: 20100409
  Transmission Date: 20101027
  Serious: Yes (Other)
  Sender: FDA-Public Use
  Company Number: 559922

PATIENT
  Age: 60 Year
  Sex: Male

DRUGS (2)
  1. METHOTREXATE [Suspect]
  2. HUMIRA [Suspect]

REACTIONS (2)
  - ARTHRITIS BACTERIAL [None]
  - JOINT ARTHROPLASTY [None]
